FAERS Safety Report 6146060-1 (Version None)
Quarter: 2009Q2

REPORT INFORMATION
  Report Type: 
  Country: None (occurrence: None)
  Receive Date: 20090403
  Receipt Date: 20090318
  Transmission Date: 20091009
  Serious: Yes (Other)
  Sender: FDA-Public Use
  Company Number: 8044293

PATIENT

DRUGS (2)
  1. METHYLPHENIDATE HCL [Suspect]
     Indication: APATHY
     Dosage: 5 MG 2/D PO
     Route: 048
  2. METHYLPHENIDATE HCL [Suspect]
     Indication: APATHY
     Dosage: 10 MG 2/D PO
     Route: 048

REACTIONS (7)
  - DECREASED APPETITE [None]
  - DELUSION [None]
  - HALLUCINATION [None]
  - INSOMNIA [None]
  - IRRITABILITY [None]
  - NIGHTMARE [None]
  - RESTLESSNESS [None]
